FAERS Safety Report 6310146-9 (Version None)
Quarter: 2009Q3

REPORT INFORMATION
  Report Type: 
  Country: None (occurrence: None)
  Receive Date: 20090814
  Receipt Date: 20090805
  Transmission Date: 20100115
  Serious: Yes (Hospitalization, Other)
  Sender: FDA-Public Use
  Company Number: CA-JNJFOC-20090802218

PATIENT
  Sex: Female
  Weight: 77.3 kg

DRUGS (3)
  1. REMICADE [Suspect]
     Indication: CROHN'S DISEASE
     Dosage: TOTAL OF 43 DOSES OF INFLIXIMAB ADMINISTERED
     Route: 042
  2. SOLU-CORTEF [Concomitant]
     Indication: PREMEDICATION
     Route: 040
  3. BENADRYL [Concomitant]
     Indication: PREMEDICATION
     Route: 040

REACTIONS (1)
  - DIABETES MELLITUS [None]
